FAERS Safety Report 5417754-8 (Version None)
Quarter: 2007Q3

REPORT INFORMATION
  Report Type: 
  Country: None (occurrence: None)
  Receive Date: 20070817
  Receipt Date: 20070808
  Transmission Date: 20080115
  Serious: Yes (Hospitalization)
  Sender: FDA-Public Use
  Company Number: PHHO2007JP13262

PATIENT
  Age: 63 Year
  Sex: Male
  Weight: 74 kg

DRUGS (9)
  1. DIOVAN [Suspect]
     Indication: HYPERTENSION
     Dosage: 80 MG, QD
     Route: 048
     Dates: start: 20030327, end: 20031112
  2. DIOVAN [Suspect]
     Dosage: 160 MG, QD
     Route: 048
     Dates: start: 20031113, end: 20051228
  3. DIOVAN [Suspect]
     Dosage: 80 MG, QD
     Route: 048
     Dates: start: 20051229
  4. GLIMICRON [Concomitant]
     Indication: DIABETES MELLITUS
  5. NORVASC [Concomitant]
     Indication: HYPERTENSION
  6. ALLOPURINOL [Concomitant]
     Indication: HYPERURICAEMIA
  7. TENORMIN [Concomitant]
     Indication: HYPERTENSION
  8. LANSOPRAZOLE [Concomitant]
     Indication: GASTRIC ULCER
  9. FAMOTIDINE [Concomitant]
     Indication: GASTRIC ULCER

REACTIONS (3)
  - CEREBRAL INFARCTION [None]
  - HYPOAESTHESIA [None]
  - SPEECH DISORDER [None]
